FAERS Safety Report 24387459 (Version 3)
Quarter: 2024Q4

REPORT INFORMATION
  Report Type: Report from Study
  Country: US (occurrence: US)
  Receive Date: 20241002
  Receipt Date: 20241119
  Transmission Date: 20250115
  Serious: Yes (Hospitalization, Other)
  Sender: BAYER HEALTHCARE PHARMACEUTICALS INC.
  Company Number: US-BAYER-2024A137661

PATIENT
  Age: 72 Year
  Sex: Female
  Weight: 59.864 kg

DRUGS (24)
  1. ADEMPAS [Suspect]
     Active Substance: RIOCIGUAT
     Indication: Pulmonary arterial hypertension
     Dosage: UNK
     Dates: start: 20240613
  2. ADEMPAS [Suspect]
     Active Substance: RIOCIGUAT
     Indication: Pulmonary arterial hypertension
     Dosage: 2 MG, TID
     Route: 048
  3. ADEMPAS [Suspect]
     Active Substance: RIOCIGUAT
     Indication: Pulmonary arterial hypertension
     Dosage: 2.5 MG, TID
     Route: 048
  4. ATORVASTATIN CALCIUM [Concomitant]
     Active Substance: ATORVASTATIN CALCIUM
  5. OMEPRAZOLE [Concomitant]
     Active Substance: OMEPRAZOLE
  6. OXYBUTYNIN CHLORIDE [Concomitant]
     Active Substance: OXYBUTYNIN CHLORIDE
  7. TIZANIDINE HYDROCHLORIDE [Concomitant]
     Active Substance: TIZANIDINE HYDROCHLORIDE
  8. POTASSIUM CHLORIDE [Concomitant]
     Active Substance: POTASSIUM CHLORIDE
  9. MYRBETRIQ [Concomitant]
     Active Substance: MIRABEGRON
  10. BREO ELLIPTA [Concomitant]
     Active Substance: FLUTICASONE FUROATE\VILANTEROL TRIFENATATE
  11. COLESTIPOL HYDROCHLORIDE [Concomitant]
     Active Substance: COLESTIPOL HYDROCHLORIDE
  12. PANTOPRAZOLE SODIUM [Concomitant]
     Active Substance: PANTOPRAZOLE SODIUM
  13. SUCRALFATE [Concomitant]
     Active Substance: SUCRALFATE
  14. ALLOPURINOL [Concomitant]
     Active Substance: ALLOPURINOL
  15. ALBUTEROL SULFATE [Concomitant]
     Active Substance: ALBUTEROL SULFATE
  16. OPSUMIT [Concomitant]
     Active Substance: MACITENTAN
  17. TRAMADOL HCL [Concomitant]
     Active Substance: TRAMADOL HYDROCHLORIDE
  18. LEVOTHYROXINE SODIUM [Concomitant]
     Active Substance: LEVOTHYROXINE SODIUM
  19. MONTELUKAST SODIUM [Concomitant]
     Active Substance: MONTELUKAST SODIUM
  20. PREDNISONE [Concomitant]
     Active Substance: PREDNISONE
  21. OXYGEN [Concomitant]
     Active Substance: OXYGEN
  22. GABAPENTIN [Concomitant]
     Active Substance: GABAPENTIN
  23. BENZONATATE [Concomitant]
     Active Substance: BENZONATATE
  24. UPTRAVI [Concomitant]
     Active Substance: SELEXIPAG

REACTIONS (13)
  - Fall [None]
  - Subdural haematoma [None]
  - Contusion [None]
  - Ocular hyperaemia [None]
  - Craniofacial fracture [None]
  - Haemoglobin decreased [None]
  - Haematoma [None]
  - Haemolytic anaemia [None]
  - Haemorrhage [None]
  - Hypotension [None]
  - Dizziness [None]
  - Incorrect dose administered [None]
  - Product dose omission issue [None]

NARRATIVE: CASE EVENT DATE: 20240101
